FAERS Safety Report 21198191 (Version 1)
Quarter: 2022Q3

REPORT INFORMATION
  Report Type: Spontaneous
  Country: US (occurrence: US)
  Receive Date: 20220811
  Receipt Date: 20220811
  Transmission Date: 20221027
  Serious: Yes (Hospitalization)
  Sender: FDA-Public Use
  Company Number: US-STRIDES ARCOLAB LIMITED-2022SP010167

PATIENT
  Age: 42 Year
  Sex: Female

DRUGS (6)
  1. METOCLOPRAMIDE [Interacting]
     Active Substance: METOCLOPRAMIDE
     Indication: Nausea
     Dosage: 10 MILLIGRAM, QID
     Route: 065
  2. METOCLOPRAMIDE [Interacting]
     Active Substance: METOCLOPRAMIDE
     Indication: Vomiting
     Dosage: 10 MILLIGRAM, QID
     Route: 042
  3. DULOXETINE [Interacting]
     Active Substance: DULOXETINE
     Indication: Major depression
     Dosage: 60 MILLIGRAM, BID
     Route: 065
  4. DULOXETINE [Interacting]
     Active Substance: DULOXETINE
     Dosage: UNK, DOSE REDUCED WITH A PLAN TO WEAN OFF
     Route: 065
  5. NORTRIPTYLINE [Interacting]
     Active Substance: NORTRIPTYLINE
     Indication: Major depression
     Dosage: 150 MILLIGRAM, AT BED TIME, EVERY NIGHT AT BEDTIME
     Route: 065
  6. NORTRIPTYLINE [Interacting]
     Active Substance: NORTRIPTYLINE
     Dosage: UNK, DOSE REDUCED WITH A PLAN TO WEAN OFF
     Route: 065

REACTIONS (3)
  - Serotonin syndrome [Recovered/Resolved]
  - Drug interaction [Unknown]
  - Dystonia [Recovered/Resolved]
